FAERS Safety Report 6428538-6 (Version None)
Quarter: 2009Q4

REPORT INFORMATION
  Report Type: 
  Country: None (occurrence: None)
  Receive Date: 20091105
  Receipt Date: 20091028
  Transmission Date: 20100525
  Serious: Yes (Hospitalization, Other)
  Sender: FDA-Public Use
  Company Number: CA-ABBOTT-09P-028-0606217-00

PATIENT
  Sex: Male
  Weight: 68.1 kg

DRUGS (11)
  1. LUPRON DEPOT [Suspect]
     Indication: PROSTATE CANCER
     Dates: start: 20070312, end: 20090629
  2. DOCUSATE SODIUM [Concomitant]
     Indication: CONSTIPATION
     Dates: start: 20030101
  3. SENNOSIDES [Concomitant]
     Indication: DRUG USE FOR UNKNOWN INDICATION
     Route: 048
     Dates: start: 20030101
  4. NEOCAL-D FORTE [Concomitant]
     Indication: DRUG USE FOR UNKNOWN INDICATION
  5. ASAPHEN [Concomitant]
     Indication: DRUG USE FOR UNKNOWN INDICATION
     Route: 048
  6. ADALAT [Concomitant]
     Indication: PROPHYLAXIS
     Route: 048
     Dates: start: 19970101
  7. ADALAT [Concomitant]
     Indication: HYPERTENSION
  8. FLOMAX [Concomitant]
     Indication: DRUG USE FOR UNKNOWN INDICATION
     Route: 048
     Dates: start: 20040101
  9. HYDROMORPH [Concomitant]
     Indication: ARTHRALGIA
     Dates: start: 20050101
  10. DILAUDID [Concomitant]
     Indication: DRUG USE FOR UNKNOWN INDICATION
     Dates: start: 20050101
  11. LYRICA [Concomitant]
     Indication: DRUG USE FOR UNKNOWN INDICATION
     Route: 048
     Dates: start: 20070621

REACTIONS (7)
  - CONSTIPATION [None]
  - DECREASED APPETITE [None]
  - DEVICE RELATED INFECTION [None]
  - DYSURIA [None]
  - HAEMATOMA [None]
  - PYREXIA [None]
  - WOUND HAEMORRHAGE [None]
